FAERS Safety Report 7693469-0 (Version None)
Quarter: 2011Q3

REPORT INFORMATION
  Report Type: 
  Country: None (occurrence: None)
  Receive Date: 20110819
  Receipt Date: 20110815
  Transmission Date: 20111222
  Serious: Yes (Hospitalization)
  Sender: FDA-Public Use
  Company Number: US-SHIRE-ALL1-2011-01862

PATIENT
  Sex: Female
  Weight: 72 kg

DRUGS (1)
  1. VPRIV [Suspect]
     Indication: GAUCHER'S DISEASE
     Dosage: 4400 IU, 1X/2WKS
     Route: 041
     Dates: start: 20100607

REACTIONS (6)
  - DEHYDRATION [None]
  - RENAL FAILURE [None]
  - DIARRHOEA [None]
  - FATIGUE [None]
  - MULTIPLE MYELOMA [None]
  - NEUROPATHY PERIPHERAL [None]
